FAERS Safety Report 24744111 (Version 2)
Quarter: 2025Q1

REPORT INFORMATION
  Report Type: Report from Study
  Country: ZA (occurrence: ZA)
  Receive Date: 20241217
  Receipt Date: 20250110
  Transmission Date: 20250409
  Serious: Yes (Death, Hospitalization, Other)
  Sender: ALEXION PHARMACEUTICALS
  Company Number: ZA-AstraZeneca-CH-00765048A

PATIENT
  Age: 82 Year

DRUGS (23)
  1. DAPAGLIFLOZIN [Suspect]
     Active Substance: DAPAGLIFLOZIN
     Indication: Diabetes mellitus
  2. DAPAGLIFLOZIN [Suspect]
     Active Substance: DAPAGLIFLOZIN
     Route: 048
  3. DAPAGLIFLOZIN [Suspect]
     Active Substance: DAPAGLIFLOZIN
  4. DAPAGLIFLOZIN [Suspect]
     Active Substance: DAPAGLIFLOZIN
     Route: 048
  5. Normoten [Concomitant]
     Indication: Hypertension
     Route: 048
  6. Normoten [Concomitant]
  7. Spiractin [Concomitant]
     Indication: Hypertension
     Route: 048
  8. Spiractin [Concomitant]
  9. ECOTRIN [Concomitant]
     Active Substance: ASPIRIN
     Route: 048
  10. ECOTRIN [Concomitant]
     Active Substance: ASPIRIN
  11. NEUROBION [Concomitant]
     Active Substance: CYANOCOBALAMIN\PYRIDOXINE\THIAMINE
     Route: 048
  12. NEUROBION [Concomitant]
     Active Substance: CYANOCOBALAMIN\PYRIDOXINE\THIAMINE
  13. Lipogen [Concomitant]
     Indication: Blood cholesterol
     Route: 048
  14. Lipogen [Concomitant]
  15. METHOTREXATE SODIUM [Concomitant]
     Active Substance: METHOTREXATE SODIUM
     Indication: Neoplasm malignant
     Route: 048
  16. METHOTREXATE SODIUM [Concomitant]
     Active Substance: METHOTREXATE SODIUM
  17. ALLOPURINOL [Concomitant]
     Active Substance: ALLOPURINOL
     Indication: Gout
     Route: 048
  18. ALLOPURINOL [Concomitant]
     Active Substance: ALLOPURINOL
  19. FOLIC ACID [Concomitant]
     Active Substance: FOLIC ACID
     Indication: Coronary artery disease
     Route: 048
  20. FOLIC ACID [Concomitant]
     Active Substance: FOLIC ACID
  21. BISOPROLOL [Concomitant]
     Active Substance: BISOPROLOL
     Indication: Hypertension
     Route: 048
  22. BISOPROLOL [Concomitant]
     Active Substance: BISOPROLOL
  23. AMLODIPINE BESYLATE [Concomitant]
     Active Substance: AMLODIPINE BESYLATE

REACTIONS (2)
  - Death [Fatal]
  - Pneumonia [Unknown]
